FAERS Safety Report 6594994-6 (Version None)
Quarter: 2010Q1

REPORT INFORMATION
  Report Type: 
  Country: None (occurrence: None)
  Receive Date: 20100218
  Receipt Date: 20100218
  Transmission Date: 20100710
  Serious: Yes (Hospitalization)
  Sender: FDA-Public Use
  Company Number: None

PATIENT
  Sex: Female
  Weight: 120.9 kg

DRUGS (3)
  1. CISPLATIN [Suspect]
     Dosage: 100 MG
  2. DOXORUBICIN HCL [Suspect]
     Dosage: 90 MG
  3. TAXOL [Suspect]
     Dosage: 180 MG

REACTIONS (8)
  - EJECTION FRACTION DECREASED [None]
  - HYPOCALCAEMIA [None]
  - HYPOKALAEMIA [None]
  - HYPOMAGNESAEMIA [None]
  - HYPONATRAEMIA [None]
  - NEUTROPENIA [None]
  - STOMATITIS [None]
  - UPPER RESPIRATORY TRACT INFECTION [None]
